FAERS Safety Report 20779428 (Version 2)
Quarter: 2022Q2

REPORT INFORMATION
  Report Type: Spontaneous
  Country: GB (occurrence: None)
  Receive Date: 20220503
  Receipt Date: 20220516
  Transmission Date: 20220721
  Serious: Yes (Hospitalization, Disabling, Other)
  Sender: FDA-Public Use
  Company Number: 2022A169754

PATIENT
  Age: 36 Year
  Sex: Male

DRUGS (1)
  1. OMEPRAZOLE [Suspect]
     Active Substance: OMEPRAZOLE
     Indication: Adverse drug reaction
     Dosage: 40 MG, DAILY(40MG MORNING)
     Route: 065
     Dates: start: 20170404

REACTIONS (8)
  - Illness [Not Recovered/Not Resolved]
  - Gastrointestinal pain [Not Recovered/Not Resolved]
  - Food intolerance [Not Recovered/Not Resolved]
  - Dysphagia [Not Recovered/Not Resolved]
  - Retching [Not Recovered/Not Resolved]
  - Weight decreased [Not Recovered/Not Resolved]
  - Rebound acid hypersecretion [Unknown]
  - Medication error [Unknown]

NARRATIVE: CASE EVENT DATE: 20180303
